FAERS Safety Report 6912216-0 (Version None)
Quarter: 2010Q3

REPORT INFORMATION
  Report Type: 
  Country: None (occurrence: None)
  Receive Date: 20100806
  Receipt Date: 20080124
  Transmission Date: 20110219
  Serious: No
  Sender: FDA-Public Use
  Company Number: US-PFIZER INC-2007103055

PATIENT
  Sex: Female
  Weight: 81.8 kg

DRUGS (12)
  1. DETROL LA [Suspect]
     Indication: NEUROGENIC BLADDER
     Dates: start: 20071130, end: 20071130
  2. METOPROLOL [Concomitant]
  3. ENTOCORT EC [Concomitant]
     Indication: GASTROINTESTINAL INFECTION
  4. ASACOL [Concomitant]
     Indication: GASTROINTESTINAL INFECTION
  5. VYTORIN [Concomitant]
  6. TERIPARATIDE [Concomitant]
  7. HYDROCHLOROTHIAZIDE [Concomitant]
  8. OMEPRAZOLE [Concomitant]
  9. POTASSIUM CHLORIDE [Concomitant]
  10. CALCIUM [Concomitant]
  11. BUDESONIDE [Concomitant]
  12. DRUG, UNSPECIFIED [Concomitant]

REACTIONS (1)
  - RASH [None]
